FAERS Safety Report 6901140-5 (Version None)
Quarter: 2010Q3

REPORT INFORMATION
  Report Type: 
  Country: None (occurrence: None)
  Receive Date: 20100803
  Receipt Date: 20100727
  Transmission Date: 20110219
  Serious: Yes (Other)
  Sender: FDA-Public Use
  Company Number: KR-PFIZER INC-2010093546

PATIENT
  Sex: Female

DRUGS (2)
  1. LIPITOR [Suspect]
     Indication: BLOOD CHOLESTEROL INCREASED
     Dosage: 20 MG, UNK
     Route: 048
  2. LIPITOR [Suspect]
     Dosage: 10 MG, UNK
     Route: 048

REACTIONS (7)
  - EYE DISORDER [None]
  - EYE MOVEMENT DISORDER [None]
  - GASTROINTESTINAL PAIN [None]
  - MUSCULOSKELETAL STIFFNESS [None]
  - MYALGIA [None]
  - VISION BLURRED [None]
  - VISUAL IMPAIRMENT [None]
